FAERS Safety Report 15837471 (Version 1)
Quarter: 2019Q1

REPORT INFORMATION
  Report Type: Report from Study
  Country: US (occurrence: US)
  Receive Date: 20190117
  Receipt Date: 20190117
  Transmission Date: 20190417
  Serious: Yes (Hospitalization)
  Sender: FDA-Public Use
  Company Number: US-PFIZER INC-2018521452

PATIENT
  Age: 56 Year
  Sex: Female

DRUGS (1)
  1. IBRANCE [Suspect]
     Active Substance: PALBOCICLIB
     Indication: BREAST CANCER FEMALE
     Dosage: 125 MG DAILY, CYCLIC (21 DAYS ON MEDICATION, 7 DAYS OFF, MAKING UP A 28 DAY CYCLE)
     Route: 048
     Dates: start: 20181106, end: 201812

REACTIONS (5)
  - Malaise [Unknown]
  - Vomiting [Unknown]
  - Fatigue [Unknown]
  - Nausea [Unknown]
  - Diarrhoea [Unknown]

NARRATIVE: CASE EVENT DATE: 2018
